FAERS Safety Report 8082212-1 (Version None)
Quarter: 2012Q1

REPORT INFORMATION
  Report Type: 
  Country: None (occurrence: None)
  Receive Date: 20120127
  Receipt Date: 20110131
  Transmission Date: 20120608
  Serious: No
  Sender: FDA-Public Use
  Company Number: US-ABBOTT-11P-163-0702079-00

PATIENT
  Sex: Female
  Weight: 46.308 kg

DRUGS (11)
  1. HYDRALAZINE HCL [Concomitant]
     Indication: HYPERTENSION
  2. LEVOTHYROXINE SODIUM [Concomitant]
     Indication: HYPOTHYROIDISM
  3. FOLIC ACID [Concomitant]
     Indication: VITAMIN SUPPLEMENTATION
  4. COUMADIN [Concomitant]
     Indication: ANTICOAGULANT THERAPY
  5. LOVASTATIN [Concomitant]
     Indication: BLOOD CHOLESTEROL INCREASED
  6. ATENOLOL [Concomitant]
     Indication: HYPERTENSION
  7. HUMIRA [Suspect]
     Indication: RHEUMATOID ARTHRITIS
     Dates: start: 20060101, end: 20110108
  8. FUROSEMIDE [Concomitant]
     Indication: SWELLING
  9. NITROGLYCERIN [Concomitant]
     Indication: ANGINA PECTORIS
  10. TRAMADOL HCL [Concomitant]
     Indication: PAIN
  11. OXYBUTYNIN [Concomitant]
     Indication: BLADDER DISORDER

REACTIONS (2)
  - PAIN IN EXTREMITY [None]
  - ARTHRALGIA [None]
